FAERS Safety Report 15485201 (Version 1)
Quarter: 2018Q4

REPORT INFORMATION
  Report Type: Spontaneous
  Country: US (occurrence: US)
  Receive Date: 20181010
  Receipt Date: 20181010
  Transmission Date: 20190205
  Serious: No
  Sender: FDA-Public Use
  Company Number: US-ROCHE-2177328

PATIENT
  Sex: Female
  Weight: 46.76 kg

DRUGS (1)
  1. ALECENSA [Suspect]
     Active Substance: ALECTINIB HYDROCHLORIDE
     Indication: BRONCHIAL CARCINOMA
     Dosage: TAKE 4 CAPSULES TWICE
     Route: 048
     Dates: start: 20180803

REACTIONS (2)
  - Constipation [Not Recovered/Not Resolved]
  - Pruritus generalised [Not Recovered/Not Resolved]
